FAERS Safety Report 4263696-3 (Version None)
Quarter: 2004Q1

REPORT INFORMATION
  Report Type: 
  Country: None (occurrence: None)
  Receive Date: 20040102
  Receipt Date: 20031218
  Transmission Date: 20041129
  Serious: Yes (Hospitalization)
  Sender: FDA-Public Use
  Company Number: USA031254776

PATIENT
  Age: 85 Year
  Sex: Female

DRUGS (1)
  1. KEFLEX [Suspect]

REACTIONS (1)
  - NONSPECIFIC REACTION [None]
